FAERS Safety Report 9028847 (Version 2)
Quarter: 2013Q1

REPORT INFORMATION
  Report Type: Spontaneous
  Country: FR (occurrence: FR)
  Receive Date: 20130124
  Receipt Date: 20130222
  Transmission Date: 20140127
  Serious: Yes (Other)
  Sender: FDA-Public Use
  Company Number: FR-JNJFOC-20130108814

PATIENT
  Age: 73 Year
  Sex: Female
  Weight: 48 kg

DRUGS (14)
  1. XARELTO [Suspect]
     Indication: CEREBROVASCULAR ACCIDENT PROPHYLAXIS
     Dosage: SWALLOW WHOLE THE TABLET WITH A GLASS OF WATER FOR 28 DAYS
     Route: 048
     Dates: start: 20121115
  2. XARELTO [Suspect]
     Indication: ATRIAL FIBRILLATION
     Dosage: SWALLOW WHOLE THE TABLET WITH A GLASS OF WATER FOR 28 DAYS
     Route: 048
     Dates: start: 20121115
  3. TRAMADOL HYDROCHLORIDE [Concomitant]
     Dosage: FOR 30 DAYS
     Route: 065
  4. CRESTOR [Concomitant]
     Dosage: EVENING
     Route: 065
  5. MODOPAR [Concomitant]
     Dosage: TO SWALLOW WITHOUT OPENING AND MUNCHING FOR 30 DAYS
     Route: 065
  6. MODOPAR [Concomitant]
     Route: 065
  7. SIFROL [Concomitant]
     Dosage: FOR 30 DAYS
     Route: 065
  8. PANTOPRAZOLE [Concomitant]
     Dosage: TABLET BEFORE DINNER
     Route: 065
  9. DIFFU K [Concomitant]
     Dosage: AT NOON FOR 30 DAYS
     Route: 065
  10. FUROSEMIDE [Concomitant]
     Dosage: 2 TABLETS IN THE MORNING FOR 30 DAYS
     Route: 065
  11. OROCAL [Concomitant]
     Dosage: TABLET TO SUCK SLOWLY OUTSIDE MEAL HOURS
     Route: 065
  12. TIAPRIDAL [Concomitant]
     Dosage: DROPS IN THE EVENING FOR 1 MONTH
     Route: 065
  13. TRANSIPEG [Concomitant]
     Dosage: BAG TO DISSOLVE IN A GLASS OF WATER IN THE MORNING FOR 30 DAYS
     Route: 065
  14. TRIMEBUTINE [Concomitant]
     Dosage: FOR 30 DAYS
     Route: 065

REACTIONS (3)
  - Thrombocytopenia [Unknown]
  - Anaemia [Unknown]
  - Leukopenia [Unknown]
